FAERS Safety Report 5143896-0 (Version None)
Quarter: 2006Q4

REPORT INFORMATION
  Report Type: 
  Country: None (occurrence: None)
  Receive Date: 20061106
  Receipt Date: 20060926
  Transmission Date: 20070319
  Serious: Yes (Hospitalization)
  Sender: FDA-Public Use
  Company Number: US-AMGEN-US194748

PATIENT
  Sex: Female

DRUGS (6)
  1. ENBREL [Suspect]
     Indication: RHEUMATOID ARTHRITIS
     Route: 058
     Dates: start: 20021201, end: 20030301
  2. HUMIRA [Suspect]
     Route: 058
     Dates: start: 20041101, end: 20060801
  3. PREDNISONE TAB [Suspect]
     Route: 048
     Dates: start: 20060401
  4. IBUPROFEN [Concomitant]
     Route: 048
     Dates: start: 20010401
  5. VICODIN [Concomitant]
     Dates: start: 20020401
  6. AVELOX [Concomitant]

REACTIONS (8)
  - BACTERIAL INFECTION [None]
  - CELLULITIS [None]
  - DEPRESSED LEVEL OF CONSCIOUSNESS [None]
  - DIALYSIS [None]
  - PSEUDOMONAS INFECTION [None]
  - RENAL FAILURE ACUTE [None]
  - RESPIRATORY DISORDER [None]
  - SEPTIC SHOCK [None]
